FAERS Safety Report 10232639 (Version 1)
Quarter: 2014Q2

REPORT INFORMATION
  Report Type: Spontaneous
  Country: FR (occurrence: FR)
  Receive Date: 20140612
  Receipt Date: 20140612
  Transmission Date: 20141212
  Serious: Yes (Death, Hospitalization, Other)
  Sender: FDA-Public Use
  Company Number: FR-PFIZER INC-2014160233

PATIENT
  Age: 76 Year
  Sex: Male

DRUGS (4)
  1. CORDARONE [Suspect]
     Indication: ARRHYTHMIA
     Dosage: UNK
     Route: 048
     Dates: start: 2009, end: 2010
  2. CORDARONE [Suspect]
     Indication: ATRIAL FIBRILLATION
     Dosage: UNK
     Route: 048
     Dates: start: 20120401, end: 201403
  3. BISOPROLOL [Concomitant]
     Indication: HYPERTENSION
  4. CRESTOR [Concomitant]
     Indication: DYSLIPIDAEMIA

REACTIONS (3)
  - Interstitial lung disease [Fatal]
  - Inflammation [Unknown]
  - Blood thyroid stimulating hormone increased [Unknown]
